FAERS Safety Report 24943245 (Version 3)
Quarter: 2025Q2

REPORT INFORMATION
  Report Type: Spontaneous
  Country: US (occurrence: US)
  Receive Date: 20250207
  Receipt Date: 20250608
  Transmission Date: 20250717
  Serious: Yes (Hospitalization, Other)
  Sender: COHERUS
  Company Number: US-COHERUS BIOSCIENCES, INC- 2025-COH-US000084

PATIENT

DRUGS (3)
  1. UDENYCA [Suspect]
     Active Substance: PEGFILGRASTIM-CBQV
     Indication: Prophylaxis
     Dosage: 6 MG, Q3WEEKS
     Route: 058
     Dates: start: 20241224
  2. TAXOTERE [Concomitant]
     Active Substance: DOCETAXEL
  3. Carbo [Concomitant]

REACTIONS (3)
  - Febrile neutropenia [Not Recovered/Not Resolved]
  - Neutropenia [Not Recovered/Not Resolved]
  - Drug ineffective [Not Recovered/Not Resolved]

NARRATIVE: CASE EVENT DATE: 20241229
